FAERS Safety Report 4491838-3 (Version None)
Quarter: 2004Q4

REPORT INFORMATION
  Report Type: 
  Country: None (occurrence: None)
  Receive Date: 20041028
  Receipt Date: 20041028
  Transmission Date: 20050328
  Serious: Yes (Other)
  Sender: FDA-Public Use
  Company Number: None

PATIENT
  Age: 51 Year
  Sex: Female
  Weight: 77.1115 kg

DRUGS (4)
  1. ZOLOFT [Suspect]
     Indication: BIPOLAR DISORDER
     Dosage: ONCE A DAY
  2. ZOLOFT [Suspect]
     Indication: DEPRESSION
     Dosage: ONCE A DAY
  3. ZOLOFT [Suspect]
     Indication: OBSESSIVE-COMPULSIVE DISORDER
     Dosage: ONCE A DAY
  4. CELEBREX [Suspect]
     Indication: ARTHRITIS
     Dosage: TWICE A DAY

REACTIONS (1)
  - WEIGHT INCREASED [None]
